FAERS Safety Report 8435928-9 (Version None)
Quarter: 2012Q2

REPORT INFORMATION
  Report Type: 
  Country: None (occurrence: None)
  Receive Date: 20120614
  Receipt Date: 20120531
  Transmission Date: 20120825
  Serious: Yes (Hospitalization)
  Sender: FDA-Public Use
  Company Number: JP-ROCHE-1061844

PATIENT
  Sex: Female

DRUGS (32)
  1. PREDNISOLONE [Suspect]
     Route: 048
     Dates: start: 20110520, end: 20110602
  2. PREDNISOLONE [Suspect]
     Route: 048
     Dates: start: 20110702, end: 20110918
  3. PREDNISOLONE [Suspect]
     Route: 048
     Dates: start: 20111214, end: 20120113
  4. ONEALFA [Concomitant]
     Indication: PROPHYLAXIS
     Route: 048
  5. PREDNISOLONE [Suspect]
     Route: 048
     Dates: start: 20111004, end: 20111017
  6. ACTEMRA [Suspect]
     Route: 041
     Dates: start: 20110409, end: 20110603
  7. ACTEMRA [Suspect]
     Route: 041
     Dates: start: 20120313
  8. PREDNISOLONE [Suspect]
     Route: 048
     Dates: start: 20110424, end: 20110429
  9. PREDNISOLONE [Suspect]
     Route: 048
     Dates: start: 20110617, end: 20110701
  10. ACTEMRA [Suspect]
     Route: 041
     Dates: start: 20110715, end: 20110813
  11. PREDNISOLONE [Suspect]
     Route: 048
     Dates: start: 20110603, end: 20110616
  12. PREDNISOLONE [Suspect]
     Route: 048
     Dates: start: 20111018, end: 20111101
  13. PREDNISOLONE [Suspect]
     Route: 048
     Dates: start: 20120214, end: 20120217
  14. PREDNISOLONE [Suspect]
     Route: 048
     Dates: start: 20120331
  15. ACTEMRA [Suspect]
     Indication: JUVENILE ARTHRITIS
     Route: 041
     Dates: start: 20110402, end: 20110402
  16. ACTEMRA [Suspect]
     Route: 041
     Dates: start: 20110617, end: 20110617
  17. ACTEMRA [Suspect]
     Route: 041
     Dates: start: 20111228, end: 20120208
  18. PREDNISOLONE [Suspect]
     Route: 048
     Dates: start: 20111102, end: 20111213
  19. PREDNISOLONE [Suspect]
     Route: 048
     Dates: start: 20120114, end: 20120208
  20. PREDNISOLONE SODIUM [Suspect]
     Indication: JUVENILE ARTHRITIS
     Route: 042
     Dates: start: 20120218, end: 20120330
  21. IBRUPROFEN [Concomitant]
     Indication: JUVENILE ARTHRITIS
     Route: 048
  22. PREDNISOLONE [Suspect]
     Route: 048
     Dates: start: 20110513, end: 20110519
  23. ACTEMRA [Suspect]
     Route: 041
     Dates: start: 20110702, end: 20110702
  24. PREDNISOLONE [Suspect]
     Indication: JUVENILE ARTHRITIS
     Route: 048
     Dates: start: 20110323, end: 20110423
  25. PREDNISOLONE [Suspect]
     Route: 048
     Dates: start: 20110919, end: 20111003
  26. PREDNISOLONE [Suspect]
     Route: 048
     Dates: start: 20120209, end: 20120213
  27. ACTEMRA [Suspect]
     Route: 041
     Dates: start: 20120215, end: 20120222
  28. NEORAL [Concomitant]
     Indication: JUVENILE ARTHRITIS
     Route: 048
  29. SELBEX [Concomitant]
     Indication: PROPHYLAXIS
     Route: 048
  30. PREDNISOLONE [Suspect]
     Route: 048
     Dates: start: 20110430, end: 20110505
  31. PREDNISOLONE [Suspect]
     Route: 048
     Dates: start: 20110506, end: 20110512
  32. ACTEMRA [Suspect]
     Route: 041
     Dates: start: 20110827, end: 20111214

REACTIONS (4)
  - COMPRESSION FRACTURE [None]
  - ABSCESS STERILE [None]
  - JUVENILE ARTHRITIS [None]
  - UPPER RESPIRATORY TRACT INFLAMMATION [None]
